FAERS Safety Report 8769772 (Version 1)
Quarter: 2012Q4

REPORT INFORMATION
  Report Type: 
  Country: ES (occurrence: ES)
  Receive Date: 20120906
  Receipt Date: 20120906
  Transmission Date: 20130627
  Serious: Yes (Hospitalization, Other)
  Sender: FDA-Public Use
  Company Number: ES-MUTUAL PHARMACEUTICAL COMPANY, INC.-LVTM20120007

PATIENT
  Age: 31 Year
  Sex: Male

DRUGS (3)
  1. LEVETIRACETAM [Suspect]
     Indication: CONVULSION
     Route: 048
  2. DEXAMATHASONE [Concomitant]
     Indication: CONVULSION
     Route: 065
  3. DEXAMATHASONE [Concomitant]
     Route: 065

REACTIONS (3)
  - Drug reaction with eosinophilia and systemic symptoms [Recovered/Resolved]
  - Pneumonitis [Recovered/Resolved]
  - Hepatitis [Recovered/Resolved]
